FAERS Safety Report 23573698 (Version 1)
Quarter: 2024Q1

REPORT INFORMATION
  Report Type: Spontaneous
  Country: GB (occurrence: GB)
  Receive Date: 20240228
  Receipt Date: 20240228
  Transmission Date: 20240410
  Serious: Yes (Hospitalization, Other)
  Sender: FDA-Public Use
  Company Number: None

PATIENT
  Age: 68 Year
  Sex: Male

DRUGS (1)
  1. ERTAPENEM SODIUM [Suspect]
     Active Substance: ERTAPENEM SODIUM
     Indication: Adverse drug reaction
     Dosage: 1G OD IV; PHARMACEUTICAL FORM PROVIDED AS INJECTION
     Dates: start: 20240205, end: 20240210

REACTIONS (3)
  - Confusional state [Recovering/Resolving]
  - Dysarthria [Recovering/Resolving]
  - Hallucination, auditory [Recovering/Resolving]

NARRATIVE: CASE EVENT DATE: 20240207
